FAERS Safety Report 5444453-9 (Version None)
Quarter: 2007Q3

REPORT INFORMATION
  Report Type: 
  Country: None (occurrence: None)
  Receive Date: 20070830
  Receipt Date: 20070820
  Transmission Date: 20080115
  Serious: Yes (Other)
  Sender: FDA-Public Use
  Company Number: 2007326873

PATIENT
  Age: 42 Year
  Sex: Male
  Weight: 68 kg

DRUGS (1)
  1. BENGAY ULTRA STRENGTH PATCH (MENTHOL) [Suspect]
     Indication: MYALGIA
     Dosage: 1 PATCH DAILY (1 IN 1 D), TOPICAL
     Route: 061
     Dates: start: 20070713, end: 20070714

REACTIONS (8)
  - APPLICATION SITE ERYTHEMA [None]
  - APPLICATION SITE PRURITUS [None]
  - APPLICATION SITE VESICLES [None]
  - BURNING SENSATION [None]
  - DERMATITIS CONTACT [None]
  - HYPERSENSITIVITY [None]
  - LOCALISED INFECTION [None]
  - WOUND SECRETION [None]
